FAERS Safety Report 6690993-4 (Version None)
Quarter: 2010Q2

REPORT INFORMATION
  Report Type: 
  Country: None (occurrence: None)
  Receive Date: 20100421
  Receipt Date: 20100412
  Transmission Date: 20101027
  Serious: Yes (Hospitalization, Other)
  Sender: FDA-Public Use
  Company Number: US-ABBOTT-10P-163-0637613-00

PATIENT
  Sex: Male
  Weight: 84.898 kg

DRUGS (16)
  1. NORVIR [Suspect]
     Indication: HIV INFECTION
     Dates: start: 20070918
  2. FOSAMPRENAVIR [Suspect]
     Indication: HIV INFECTION
     Dates: start: 20070918
  3. ABACAVIR [Suspect]
     Indication: HIV INFECTION
     Dates: start: 20061031
  4. VIREAD [Suspect]
     Indication: HIV INFECTION
     Dates: start: 20070709
  5. LIDOCAINE [Concomitant]
     Indication: DRUG USE FOR UNKNOWN INDICATION
  6. LOMOTIL [Concomitant]
     Indication: DRUG USE FOR UNKNOWN INDICATION
  7. RENAGEL [Concomitant]
     Indication: DRUG USE FOR UNKNOWN INDICATION
  8. OXYBUTYNIN CHLORIDE [Concomitant]
     Indication: DRUG USE FOR UNKNOWN INDICATION
  9. ZYPREXA [Concomitant]
     Indication: DRUG USE FOR UNKNOWN INDICATION
  10. EFFEXOR XR [Concomitant]
     Indication: DRUG USE FOR UNKNOWN INDICATION
  11. GABAPENTIN [Concomitant]
     Indication: DRUG USE FOR UNKNOWN INDICATION
  12. DIVALPROEX SODIUM [Concomitant]
     Indication: DRUG USE FOR UNKNOWN INDICATION
  13. PANTOPRAZOLE [Concomitant]
     Indication: DRUG USE FOR UNKNOWN INDICATION
  14. METOPROLOL SUCCINATE [Concomitant]
     Indication: DRUG USE FOR UNKNOWN INDICATION
  15. CALCIUM CARBONATE [Concomitant]
     Indication: DRUG USE FOR UNKNOWN INDICATION
  16. FOLIC ACID [Concomitant]
     Indication: DRUG USE FOR UNKNOWN INDICATION

REACTIONS (5)
  - CHEST PAIN [None]
  - DRUG ABUSE [None]
  - DYSPNOEA [None]
  - FLUID OVERLOAD [None]
  - HYPERTENSION [None]
